FAERS Safety Report 9417673 (Version 1)
Quarter: 2013Q3

REPORT INFORMATION
  Report Type: Spontaneous
  Country: US (occurrence: None)
  Receive Date: 20130722
  Receipt Date: 20130722
  Transmission Date: 20140515
  Serious: No
  Sender: FDA-Public Use
  Company Number: None

PATIENT
  Sex: Female

DRUGS (4)
  1. TEGRATOL [Suspect]
     Indication: EPILEPSY
  2. TOPAMAX [Suspect]
  3. TEGRATOL [Concomitant]
     Indication: EPILEPSY
  4. TOPAMAX [Concomitant]

REACTIONS (3)
  - Diplopia [None]
  - No therapeutic response [None]
  - Product quality issue [None]
